FAERS Safety Report 4756915-8 (Version None)
Quarter: 2005Q3

REPORT INFORMATION
  Report Type: 
  Country: None (occurrence: None)
  Receive Date: 20050830
  Receipt Date: 20050826
  Transmission Date: 20060218
  Serious: Yes (Life-Threatening, Hospitalization)
  Sender: FDA-Public Use
  Company Number: 2005UW12747

PATIENT
  Age: 46 Year
  Sex: Female

DRUGS (4)
  1. SEROQUEL [Suspect]
     Route: 048
     Dates: end: 20050101
  2. LITHIUM [Suspect]
     Dates: end: 20050101
  3. VISTARIL [Suspect]
     Dates: end: 20050101
  4. LEXAPRO [Suspect]
     Dates: end: 20050101

REACTIONS (4)
  - CARDIO-RESPIRATORY ARREST [None]
  - LIVER DISORDER [None]
  - MULTI-ORGAN FAILURE [None]
  - RENAL FAILURE ACUTE [None]
